FAERS Safety Report 17246267 (Version 1)
Quarter: 2020Q1

REPORT INFORMATION
  Report Type: Spontaneous
  Country: CA (occurrence: CA)
  Receive Date: 20200108
  Receipt Date: 20200108
  Transmission Date: 20200409
  Serious: Yes (Other)
  Sender: FDA-Public Use
  Company Number: CA-VIIV HEALTHCARE LIMITED-CA2020AMR003063

PATIENT
  Sex: Male

DRUGS (1)
  1. TRIUMEQ [Suspect]
     Active Substance: ABACAVIR SULFATE\DOLUTEGRAVIR SODIUM\LAMIVUDINE
     Indication: HIV INFECTION
     Dosage: UNK

REACTIONS (8)
  - CD4 lymphocytes increased [Unknown]
  - Haematochezia [Unknown]
  - Lymphogranuloma venereum [Unknown]
  - Ulcer [Unknown]
  - Polyp [Unknown]
  - Kaposi^s sarcoma [Unknown]
  - Viral load decreased [Unknown]
  - Cytomegalovirus infection [Unknown]
